FAERS Safety Report 6315479-8 (Version None)
Quarter: 2009Q3

REPORT INFORMATION
  Report Type: 
  Country: None (occurrence: None)
  Receive Date: 20090819
  Receipt Date: 20090806
  Transmission Date: 20100115
  Serious: Yes (Other)
  Sender: FDA-Public Use
  Company Number: CA-PFIZER INC-2009251334

PATIENT

DRUGS (1)
  1. DETROL LA [Suspect]
     Indication: HYPERTONIC BLADDER
     Route: 048

REACTIONS (3)
  - LOSS OF CONSCIOUSNESS [None]
  - PAIN [None]
  - SWELLING FACE [None]
